FAERS Safety Report 24324753 (Version 2)
Quarter: 2025Q1

REPORT INFORMATION
  Report Type: Spontaneous
  Country: US (occurrence: US)
  Receive Date: 20240916
  Receipt Date: 20250103
  Transmission Date: 20250409
  Serious: No
  Sender: EISAI
  Company Number: US-Eisai-EC-2024-172375

PATIENT
  Age: 76 Year
  Sex: Female

DRUGS (1)
  1. LEQEMBI [Suspect]
     Active Substance: LECANEMAB-IRMB
     Indication: Dementia Alzheimer^s type
     Route: 042
     Dates: start: 20240816, end: 20241121

REACTIONS (11)
  - Feeling abnormal [Unknown]
  - Insomnia [Recovered/Resolved]
  - Headache [Recovering/Resolving]
  - Malaise [Recovering/Resolving]
  - Hallucination [Recovering/Resolving]
  - Blood pressure systolic increased [Recovering/Resolving]
  - Oral herpes [Recovering/Resolving]
  - Paraesthesia oral [Recovering/Resolving]
  - Hypersensitivity [Recovering/Resolving]
  - Restlessness [Recovering/Resolving]
  - Disorientation [Recovered/Resolved]

NARRATIVE: CASE EVENT DATE: 20240801
